FAERS Safety Report 13890977 (Version 1)
Quarter: 2017Q3

REPORT INFORMATION
  Report Type: Spontaneous
  Country: CA (occurrence: CA)
  Receive Date: 20170822
  Receipt Date: 20170822
  Transmission Date: 20171127
  Serious: Yes (Life-Threatening, Hospitalization, Other)
  Sender: FDA-Public Use
  Company Number: CA-ACCORD-057474

PATIENT
  Age: 49 Year
  Sex: Female

DRUGS (3)
  1. ESCITALOPRAM [Suspect]
     Active Substance: ESCITALOPRAM OXALATE
  2. AMLODIPINE [Suspect]
     Active Substance: AMLODIPINE BESYLATE
  3. RISPERIDONE. [Suspect]
     Active Substance: RISPERIDONE

REACTIONS (8)
  - Intentional overdose [Unknown]
  - Shock [Recovering/Resolving]
  - Hypoglycaemia [Recovering/Resolving]
  - Anuria [Recovered/Resolved]
  - Optic atrophy [Not Recovered/Not Resolved]
  - Blindness [Unknown]
  - Hypokalaemia [Recovering/Resolving]
  - Pulmonary oedema [Recovered/Resolved]
